FAERS Safety Report 9262847 (Version 2)
Quarter: 2013Q2

REPORT INFORMATION
  Report Type: Spontaneous
  Country: US (occurrence: None)
  Receive Date: 20130423
  Receipt Date: 20130509
  Transmission Date: 20140414
  Serious: Yes (Hospitalization)
  Sender: FDA-Public Use
  Company Number: 2013PROUSA02737

PATIENT
  Age: 78 Year
  Sex: Male
  Weight: 96.6 kg

DRUGS (9)
  1. PROVENGE (SIPULEUCEL-T) SUSPENSION [Suspect]
     Indication: PROSTATE CANCER METASTATIC
     Dosage: SINGLE
     Route: 042
     Dates: start: 20130314, end: 20130314
  2. HYDROCHLOROTHIAZIDE (HYDROCHLOROTHIAZIDE) [Concomitant]
  3. SIMVASTATIN (SIMVASTATIN) [Concomitant]
  4. NAPROXEN SODIUM (NAPROXEN SODIUM) [Concomitant]
  5. ASPIRIN (ACETYLSALICYLIC ACID) [Concomitant]
  6. VITAMIN E (TOCOPHERYL ACETATE) [Concomitant]
  7. LUPRON DEPOT (LEUPRORELIN ACETATE) [Concomitant]
  8. MULTIVITAMIN (VITAMIN NOS) [Concomitant]
  9. ZANTAC (RANITIDINE HYDROCHLORIDE) [Concomitant]

REACTIONS (7)
  - Hypokalaemia [None]
  - Asthenia [None]
  - Presyncope [None]
  - Dehydration [None]
  - Atelectasis [None]
  - Bronchitis [None]
  - Gait disturbance [None]
